FAERS Safety Report 13131716 (Version 1)
Quarter: 2017Q1

REPORT INFORMATION
  Report Type: Not Available
  Country: None (occurrence: US)
  Receive Date: 20170119
  Receipt Date: 20170119
  Transmission Date: 20170428
  Serious: Yes (Life-Threatening, Hospitalization)
  Sender: FDA-Public Use
  Company Number: UK-AKORN-48022

PATIENT
  Age: 64 Year
  Sex: Male

DRUGS (1)
  1. LORAZEPAM INJECTION, USP CIV [Suspect]
     Active Substance: LORAZEPAM

REACTIONS (7)
  - Hospitalisation [Recovered/Resolved]
  - Electrocardiogram J wave [Recovered/Resolved]
  - Hypothermia [Recovered/Resolved]
  - Coma [Recovered/Resolved]
  - Sinus bradycardia [Recovered/Resolved]
  - Electrocardiogram QT interval abnormal [Recovered/Resolved]
  - Drug interaction [None]
